APPROVED DRUG PRODUCT: SODIUM CHLORIDE 0.9% IN STERILE PLASTIC CONTAINER
Active Ingredient: SODIUM CHLORIDE
Strength: 900MG/100ML
Dosage Form/Route: SOLUTION FOR SLUSH;IRRIGATION
Application: N019319 | Product #002
Applicant: BAXTER HEALTHCARE CORP
Approved: May 17, 1985 | RLD: Yes | RS: Yes | Type: RX